FAERS Safety Report 5378904-5 (Version None)
Quarter: 2007Q3

REPORT INFORMATION
  Report Type: 
  Country: None (occurrence: None)
  Receive Date: 20070705
  Receipt Date: 20070625
  Transmission Date: 20080115
  Serious: Yes (Hospitalization)
  Sender: FDA-Public Use
  Company Number: BE-AMGEN-US232069

PATIENT
  Age: 71 Year
  Sex: Male
  Weight: 55 kg

DRUGS (3)
  1. ENBREL [Suspect]
     Indication: RHEUMATOID ARTHRITIS
     Route: 058
     Dates: start: 20030708, end: 20070514
  2. CELEBREX [Concomitant]
     Indication: ARTHRITIS
     Route: 048
     Dates: start: 20070514
  3. DOLZAM [Concomitant]
     Indication: PAIN
     Route: 048
     Dates: start: 20070401, end: 20070514

REACTIONS (2)
  - LEUKOCYTOCLASTIC VASCULITIS [None]
  - PYREXIA [None]
